FAERS Safety Report 6517242-1 (Version None)
Quarter: 2009Q4

REPORT INFORMATION
  Report Type: 
  Country: None (occurrence: None)
  Receive Date: 20091217
  Receipt Date: 20091015
  Transmission Date: 20100525
  Serious: Yes (Hospitalization)
  Sender: FDA-Public Use
  Company Number: 89377

PATIENT
  Age: 57 Year
  Sex: Male

DRUGS (1)
  1. CISPLATIN [Suspect]
     Dosage: 150MG (150MG, 1 IN 3 WEEKS)/IV
     Route: 042
     Dates: start: 20080730

REACTIONS (1)
  - PYREXIA [None]
